FAERS Safety Report 6155631-8 (Version None)
Quarter: 2009Q2

REPORT INFORMATION
  Report Type: 
  Country: None (occurrence: None)
  Receive Date: 20090415
  Receipt Date: 20090406
  Transmission Date: 20091009
  Serious: Yes (Hospitalization)
  Sender: FDA-Public Use
  Company Number: US-ASTRAZENECA-2009AC01020

PATIENT
  Age: 20 Month
  Sex: Male
  Weight: 12.3 kg

DRUGS (1)
  1. BUPIVACAINE [Suspect]
     Indication: NERVE BLOCK
     Route: 053

REACTIONS (3)
  - ELECTROCARDIOGRAM ST SEGMENT DEPRESSION [None]
  - ELECTROCARDIOGRAM T WAVE INVERSION [None]
  - VENTRICULAR DYSFUNCTION [None]
